FAERS Safety Report 17287508 (Version 1)
Quarter: 2020Q1

REPORT INFORMATION
  Report Type: Spontaneous
  Country: US (occurrence: US)
  Receive Date: 20200120
  Receipt Date: 20200120
  Transmission Date: 20200409
  Serious: No
  Sender: FDA-Public Use
  Company Number: US-TEVA-2020-US-1166687

PATIENT
  Sex: Female

DRUGS (1)
  1. ADDERALL [Suspect]
     Active Substance: AMPHETAMINE ASPARTATE\AMPHETAMINE SULFATE\DEXTROAMPHETAMINE SACCHARATE\DEXTROAMPHETAMINE SULFATE
     Dosage: 60 MILLIGRAM DAILY;
     Route: 065

REACTIONS (6)
  - Fatigue [Unknown]
  - Ill-defined disorder [Unknown]
  - Vomiting [Unknown]
  - Somnolence [Unknown]
  - Lethargy [Unknown]
  - Drug ineffective [Unknown]
